FAERS Safety Report 20617271 (Version 18)
Quarter: 2023Q2

REPORT INFORMATION
  Report Type: Other
  Country: CA (occurrence: None)
  Receive Date: 20220321
  Receipt Date: 20230417
  Transmission Date: 20230722
  Serious: Yes (Other)
  Sender: FDA-Public Use
  Company Number: CA-ROCHE-3032952

PATIENT
  Age: 56 Year
  Sex: Female

DRUGS (23)
  1. OCREVUS [Suspect]
     Active Substance: OCRELIZUMAB
     Indication: Relapsing-remitting multiple sclerosis
     Dosage: FIRST INFUSION, THEN 600 MG EVERY 6 MONTH
     Route: 042
     Dates: start: 20220217
  2. OCREVUS [Suspect]
     Active Substance: OCRELIZUMAB
     Route: 042
  3. MYRBETRIQ [Suspect]
     Active Substance: MIRABEGRON
     Indication: Product used for unknown indication
     Route: 065
  4. TAMSULOSIN [Suspect]
     Active Substance: TAMSULOSIN
     Indication: Product used for unknown indication
     Route: 065
  5. CAFFEINE [Suspect]
     Active Substance: CAFFEINE
     Indication: Product used for unknown indication
     Route: 065
  6. ACETAMINOPHEN [Concomitant]
     Active Substance: ACETAMINOPHEN
     Route: 048
  7. BENADRYL [Concomitant]
     Active Substance: DIPHENHYDRAMINE HYDROCHLORIDE
     Route: 048
  8. METHYLPREDNISOLONE [Concomitant]
     Active Substance: METHYLPREDNISOLONE
     Route: 042
  9. VALACYCLOVIR HYDROCHLORIDE [Concomitant]
     Active Substance: VALACYCLOVIR HYDROCHLORIDE
     Dates: start: 20220216
  10. FLOVENT [Concomitant]
     Active Substance: FLUTICASONE PROPIONATE
  11. VENTOLIN [Concomitant]
     Active Substance: ALBUTEROL SULFATE
  12. TECFIDERA [Concomitant]
     Active Substance: DIMETHYL FUMARATE
  13. CLONAZEPAM [Concomitant]
     Active Substance: CLONAZEPAM
  14. VENLAFAXINE HYDROCHLORIDE [Concomitant]
     Active Substance: VENLAFAXINE HYDROCHLORIDE
  15. CHOLECALCIFEROL [Concomitant]
     Active Substance: CHOLECALCIFEROL
  16. DOCUSATE SODIUM [Concomitant]
     Active Substance: DOCUSATE SODIUM
  17. BISACODYL [Concomitant]
     Active Substance: BISACODYL
  18. NASACORT AQ [Concomitant]
     Active Substance: TRIAMCINOLONE ACETONIDE
  19. SALINEX [Concomitant]
  20. SYMBICORT [Concomitant]
     Active Substance: BUDESONIDE\FORMOTEROL FUMARATE DIHYDRATE
  21. LACTULOSE [Concomitant]
     Active Substance: LACTULOSE
  22. HYDROXYZINE [Concomitant]
     Active Substance: HYDROXYZINE HYDROCHLORIDE
  23. EFFEXOR [Concomitant]
     Active Substance: VENLAFAXINE HYDROCHLORIDE

REACTIONS (44)
  - Laryngitis [Not Recovered/Not Resolved]
  - Headache [Recovered/Resolved]
  - Neck pain [Recovered/Resolved]
  - Fatigue [Not Recovered/Not Resolved]
  - Asthenia [Recovering/Resolving]
  - Skin disorder [Not Recovered/Not Resolved]
  - Heart rate increased [Not Recovered/Not Resolved]
  - Ear pain [Recovered/Resolved]
  - Oropharyngeal pain [Not Recovered/Not Resolved]
  - Asthma [Not Recovered/Not Resolved]
  - Headache [Recovering/Resolving]
  - Epiglottitis [Unknown]
  - Sinusitis [Unknown]
  - Odynophagia [Unknown]
  - Hypotension [Unknown]
  - Hot flush [Unknown]
  - Paraesthesia [Not Recovered/Not Resolved]
  - Piloerection [Unknown]
  - Pruritus [Recovered/Resolved]
  - Infusion related reaction [Recovered/Resolved]
  - Electric shock sensation [Unknown]
  - Nausea [Unknown]
  - Facial pain [Unknown]
  - Musculoskeletal stiffness [Unknown]
  - Throat tightness [Unknown]
  - Anxiety [Unknown]
  - Muscle spasticity [Not Recovered/Not Resolved]
  - Heart rate irregular [Not Recovered/Not Resolved]
  - Sleep disorder [Unknown]
  - Bladder disorder [Unknown]
  - Pain [Unknown]
  - Blood pressure increased [Unknown]
  - Infusion related reaction [Recovered/Resolved]
  - Oral herpes [Unknown]
  - Herpes zoster [Unknown]
  - Tooth fracture [Not Recovered/Not Resolved]
  - Muscle spasms [Not Recovered/Not Resolved]
  - Neuralgia [Unknown]
  - Drug hypersensitivity [Unknown]
  - Caffeine allergy [Unknown]
  - Increased tendency to bruise [Not Recovered/Not Resolved]
  - Vision blurred [Not Recovered/Not Resolved]
  - Urinary incontinence [Not Recovered/Not Resolved]
  - Hypoaesthesia [Unknown]

NARRATIVE: CASE EVENT DATE: 20220217
